FAERS Safety Report 4899469-8 (Version None)
Quarter: 2006Q1

REPORT INFORMATION
  Report Type: 
  Country: None (occurrence: None)
  Receive Date: 20060118
  Receipt Date: 20050524
  Transmission Date: 20060701
  Serious: No
  Sender: FDA-Public Use
  Company Number: 2005000965

PATIENT
  Age: 85 Year
  Sex: Female

DRUGS (5)
  1. TARCEVA [Suspect]
     Indication: NON-SMALL CELL LUNG CANCER
     Dosage: 150 MG (QD), ORAL
     Route: 048
     Dates: start: 20050208
  2. AVASTIN [Concomitant]
  3. ZOMETA [Concomitant]
  4. NIFEDIPINE [Concomitant]
  5. AMIODARONE (AMIODARONE) [Concomitant]

REACTIONS (3)
  - DYSPHONIA [None]
  - ORAL PAIN [None]
  - SKIN FISSURES [None]
